FAERS Safety Report 13139496 (Version 1)
Quarter: 2017Q1

REPORT INFORMATION
  Report Type: Spontaneous
  Country: US (occurrence: US)
  Receive Date: 20170123
  Receipt Date: 20170123
  Transmission Date: 20170428
  Serious: No
  Sender: FDA-Public Use
  Company Number: US-REGENERON PHARMACEUTICALS, INC.-2016-11631

PATIENT

DRUGS (7)
  1. ESCITALOPRAM [Concomitant]
     Active Substance: ESCITALOPRAM OXALATE
     Indication: PRODUCT USED FOR UNKNOWN INDICATION
  2. LISINOPRIL. [Concomitant]
     Active Substance: LISINOPRIL
     Indication: PRODUCT USED FOR UNKNOWN INDICATION
  3. EYLEA [Suspect]
     Active Substance: AFLIBERCEPT
     Dosage: UNK, SINGLE DOSE
     Dates: start: 20160119, end: 20160119
  4. AVASTIN [Suspect]
     Active Substance: BEVACIZUMAB
     Indication: NEOVASCULAR AGE-RELATED MACULAR DEGENERATION
  5. ASPIRIN                            /00002701/ [Concomitant]
     Active Substance: ASPIRIN
     Indication: PRODUCT USED FOR UNKNOWN INDICATION
  6. LANSOPRAZOL [Concomitant]
     Active Substance: LANSOPRAZOLE
     Indication: PRODUCT USED FOR UNKNOWN INDICATION
  7. EYLEA [Suspect]
     Active Substance: AFLIBERCEPT
     Indication: NEOVASCULAR AGE-RELATED MACULAR DEGENERATION
     Dosage: 2 MG MILLIGRAM(S), MONTHLY

REACTIONS (1)
  - Psoriasis [Unknown]
